FAERS Safety Report 4859241-1 (Version None)
Quarter: 2005Q4

REPORT INFORMATION
  Report Type: 
  Country: None (occurrence: None)
  Receive Date: 20051219
  Receipt Date: 20051205
  Transmission Date: 20060501
  Serious: Yes (Other)
  Sender: FDA-Public Use
  Company Number: US-AMGEN-US160595

PATIENT
  Sex: Male

DRUGS (3)
  1. PROCRIT [Suspect]
     Indication: ANAEMIA OF MALIGNANT DISEASE
     Route: 058
     Dates: start: 20051110
  2. BACTRIM DS [Concomitant]
     Route: 048
     Dates: start: 20051001
  3. PREDNISONE TAB [Concomitant]
     Dates: start: 20051001

REACTIONS (1)
  - APLASIA PURE RED CELL [None]
